FAERS Safety Report 7280694-6 (Version None)
Quarter: 2011Q1

REPORT INFORMATION
  Report Type: 
  Country: None (occurrence: None)
  Receive Date: 20110208
  Receipt Date: 20110201
  Transmission Date: 20110831
  Serious: Yes (Other)
  Sender: FDA-Public Use
  Company Number: A0912127A

PATIENT
  Age: 14 Year
  Sex: Male

DRUGS (4)
  1. MULTI-VITAMIN [Concomitant]
  2. VALPROATE [Concomitant]
  3. CARNITOR [Concomitant]
  4. LAMICTAL XR [Suspect]
     Dosage: 50MG PER DAY
     Route: 048
     Dates: end: 20110129

REACTIONS (4)
  - ENERGY INCREASED [None]
  - INSOMNIA [None]
  - CONVULSION [None]
  - FEELING ABNORMAL [None]
